FAERS Safety Report 6138802-6 (Version None)
Quarter: 2009Q1

REPORT INFORMATION
  Report Type: 
  Country: None (occurrence: None)
  Receive Date: 20090331
  Receipt Date: 20090326
  Transmission Date: 20090719
  Serious: Yes (Other)
  Sender: FDA-Public Use
  Company Number: CA-ABBOTT-09P-028-0560262-00

PATIENT
  Sex: Female
  Weight: 72.64 kg

DRUGS (16)
  1. HUMIRA [Suspect]
     Indication: RHEUMATOID ARTHRITIS
     Route: 050
     Dates: start: 20060109
  2. AMIDARONE [Concomitant]
     Indication: DRUG USE FOR UNKNOWN INDICATION
  3. ASPIRIN [Concomitant]
     Indication: DRUG USE FOR UNKNOWN INDICATION
  4. CALCIUM [Concomitant]
     Indication: DRUG USE FOR UNKNOWN INDICATION
  5. DIGOXIN [Concomitant]
     Indication: DRUG USE FOR UNKNOWN INDICATION
  6. DIOVAN [Concomitant]
     Indication: DRUG USE FOR UNKNOWN INDICATION
  7. FOSAMAX [Concomitant]
     Indication: DRUG USE FOR UNKNOWN INDICATION
  8. LEVOTHYROXINE SODIUM [Concomitant]
     Indication: DRUG USE FOR UNKNOWN INDICATION
  9. METOPROLOL [Concomitant]
     Indication: DRUG USE FOR UNKNOWN INDICATION
  10. MULTI-VITAMIN [Concomitant]
     Indication: DRUG USE FOR UNKNOWN INDICATION
  11. NITRO-SPRAY [Concomitant]
     Indication: DRUG USE FOR UNKNOWN INDICATION
  12. PANTOPRAZOLE SODIUM [Concomitant]
     Indication: DRUG USE FOR UNKNOWN INDICATION
  13. PREDNISON [Concomitant]
     Indication: DRUG USE FOR UNKNOWN INDICATION
  14. REMERON [Concomitant]
     Indication: DRUG USE FOR UNKNOWN INDICATION
  15. TYLENOL W/ CODEINE NO. 3 [Concomitant]
     Indication: DRUG USE FOR UNKNOWN INDICATION
  16. VITAMIN D [Concomitant]
     Indication: DRUG USE FOR UNKNOWN INDICATION

REACTIONS (4)
  - ARTHROPATHY [None]
  - PAIN [None]
  - SKIN ULCER [None]
  - SWELLING [None]
